FAERS Safety Report 9479431 (Version 1)
Quarter: 2013Q3

REPORT INFORMATION
  Report Type: Spontaneous
  Country: US (occurrence: US)
  Receive Date: 20130827
  Receipt Date: 20130827
  Transmission Date: 20140515
  Serious: Yes (Death)
  Sender: FDA-Public Use
  Company Number: US-MERCK-1308USA010602

PATIENT
  Sex: Male

DRUGS (2)
  1. JANUVIA [Suspect]
     Dosage: 50 MG, QD
     Route: 048
  2. DULERA [Suspect]
     Dosage: ^TWO PUFFS^, BID
     Route: 055

REACTIONS (1)
  - Death [Fatal]
